FAERS Safety Report 5589220-0 (Version None)
Quarter: 2008Q1

REPORT INFORMATION
  Report Type: 
  Country: None (occurrence: None)
  Receive Date: 20080114
  Receipt Date: 20080104
  Transmission Date: 20080703
  Serious: Yes (Hospitalization, Disabling)
  Sender: FDA-Public Use
  Company Number: PHRM2008FR00499

PATIENT
  Age: 65 Year
  Sex: Female

DRUGS (2)
  1. ZOMETA [Suspect]
     Indication: BREAST CANCER
     Dates: start: 19920101, end: 20050101
  2. ANTINEOPLASTIC AGENTS [Concomitant]

REACTIONS (7)
  - BONE DEBRIDEMENT [None]
  - OSTEITIS [None]
  - OSTEOLYSIS [None]
  - OSTEONECROSIS [None]
  - OSTEOTOMY [None]
  - PROSTHESIS IMPLANTATION [None]
  - TOOTH AVULSION [None]
